FAERS Safety Report 6891666-5 (Version None)
Quarter: 2010Q3

REPORT INFORMATION
  Report Type: 
  Country: None (occurrence: None)
  Receive Date: 20100731
  Receipt Date: 20070914
  Transmission Date: 20110219
  Serious: No
  Sender: FDA-Public Use
  Company Number: US-PFIZER INC-2007077420

PATIENT
  Sex: Male

DRUGS (2)
  1. NEURONTIN [Suspect]
     Indication: NERVOUS SYSTEM DISORDER
  2. LYRICA [Suspect]
     Indication: NERVOUS SYSTEM DISORDER

REACTIONS (1)
  - URINARY INCONTINENCE [None]
